FAERS Safety Report 5177726-8 (Version None)
Quarter: 2006Q4

REPORT INFORMATION
  Report Type: 
  Country: None (occurrence: None)
  Receive Date: 20061207
  Receipt Date: 20061122
  Transmission Date: 20070319
  Serious: Yes (Death, Hospitalization)
  Sender: FDA-Public Use
  Company Number: 080

PATIENT
  Sex: Male

DRUGS (7)
  1. FAZACLO ODT [Suspect]
     Indication: SCHIZOPHRENIA
     Dosage: 300 MG PO DAILY
     Route: 048
     Dates: start: 20060516, end: 20061121
  2. COUMADIN [Concomitant]
  3. LISINOPRIL [Concomitant]
  4. TOPROL-XL [Concomitant]
  5. ATORVASTATIN [Concomitant]
  6. GEMFIBROZIL [Concomitant]
  7. FIBERCON [Concomitant]

REACTIONS (2)
  - CARDIAC ARREST [None]
  - CHOKING [None]
